FAERS Safety Report 17897062 (Version 2)
Quarter: 2020Q3

REPORT INFORMATION
  Report Type: Report from Study
  Country: US (occurrence: US)
  Receive Date: 20200615
  Receipt Date: 20200701
  Transmission Date: 20201103
  Serious: Yes (Hospitalization)
  Sender: FDA-Public Use
  Company Number: US-ACTELION-A-NJ2020-205368

PATIENT
  Sex: Male
  Weight: 86.17 kg

DRUGS (3)
  1. UPTRAVI [Suspect]
     Active Substance: SELEXIPAG
     Indication: PULMONARY ARTERIAL HYPERTENSION
     Dosage: 400 MG, BID
     Route: 048
     Dates: end: 202006
  2. LETAIRIS [Concomitant]
     Active Substance: AMBRISENTAN
  3. SILDENAFIL CITRATE. [Concomitant]
     Active Substance: SILDENAFIL CITRATE

REACTIONS (13)
  - Suicidal ideation [Unknown]
  - Pain [Unknown]
  - Faeces discoloured [Unknown]
  - Blood urine present [Unknown]
  - Fluid retention [Unknown]
  - Liver disorder [Unknown]
  - Hallucination [Unknown]
  - Headache [Unknown]
  - Vomiting [Unknown]
  - Unevaluable event [Unknown]
  - Crying [Unknown]
  - Illness [Unknown]
  - Peripheral swelling [Unknown]
